FAERS Safety Report 22066493 (Version 1)
Quarter: 2023Q1

REPORT INFORMATION
  Report Type: Spontaneous
  Country: ZA (occurrence: ZA)
  Receive Date: 20230306
  Receipt Date: 20230306
  Transmission Date: 20230417
  Serious: Yes (Other)
  Sender: FDA-Public Use
  Company Number: ZA-CIPLA LTD.-2023ZA01217

PATIENT

DRUGS (2)
  1. WARFARIN [Suspect]
     Active Substance: WARFARIN
     Indication: Product used for unknown indication
     Dosage: UNK (1 1/2 ON SAT/WED, 1 ON REMINDER DAYS)
     Route: 065
     Dates: start: 202302
  2. WARFARIN [Suspect]
     Active Substance: WARFARIN
     Dosage: UNK, QD
     Route: 065
     Dates: start: 202302

REACTIONS (3)
  - Anticoagulation drug level below therapeutic [Recovered/Resolved]
  - Anticoagulation drug level above therapeutic [Recovered/Resolved]
  - Prothrombin time prolonged [Recovered/Resolved]

NARRATIVE: CASE EVENT DATE: 20230201
